FAERS Safety Report 26053350 (Version 1)
Quarter: 2025Q4

REPORT INFORMATION
  Report Type: Spontaneous
  Country: US (occurrence: US)
  Receive Date: 20251117
  Receipt Date: 20251117
  Transmission Date: 20260119
  Serious: No
  Sender: MYLAN
  Company Number: US-MYLANLABS-2025M1092420

PATIENT
  Age: 53 Year
  Sex: Female
  Weight: 56.25 kg

DRUGS (8)
  1. ESTRADIOL TRANSDERMAL SYSTEM [Suspect]
     Active Substance: ESTRADIOL
     Indication: Menopausal symptoms
     Dosage: 0.1 MILLIGRAM, QD (PER DAY, ONCE WEEKLY)
     Dates: start: 2025
  2. ESTRADIOL TRANSDERMAL SYSTEM [Suspect]
     Active Substance: ESTRADIOL
     Indication: Mood swings
     Dosage: 0.1 MILLIGRAM, QD (PER DAY, ONCE WEEKLY)
     Route: 062
     Dates: start: 2025
  3. ESTRADIOL TRANSDERMAL SYSTEM [Suspect]
     Active Substance: ESTRADIOL
     Indication: Hot flush
     Dosage: 0.1 MILLIGRAM, QD (PER DAY, ONCE WEEKLY)
     Route: 062
     Dates: start: 2025
  4. ESTRADIOL TRANSDERMAL SYSTEM [Suspect]
     Active Substance: ESTRADIOL
     Dosage: 0.1 MILLIGRAM, QD (PER DAY, ONCE WEEKLY)
     Dates: start: 2025
  5. FLUOXETINE [Concomitant]
     Active Substance: FLUOXETINE HYDROCHLORIDE
     Dosage: UNK
  6. FLUOXETINE [Concomitant]
     Active Substance: FLUOXETINE HYDROCHLORIDE
     Dosage: UNK
     Route: 065
  7. FLUOXETINE [Concomitant]
     Active Substance: FLUOXETINE HYDROCHLORIDE
     Dosage: UNK
     Route: 065
  8. FLUOXETINE [Concomitant]
     Active Substance: FLUOXETINE HYDROCHLORIDE
     Dosage: UNK

REACTIONS (5)
  - Application site rash [Recovering/Resolving]
  - Application site pruritus [Recovering/Resolving]
  - Application site erythema [Recovering/Resolving]
  - Product substitution issue [Unknown]
  - Product adhesion issue [Unknown]

NARRATIVE: CASE EVENT DATE: 20251001
